FAERS Safety Report 20451381 (Version 1)
Quarter: 2022Q1

REPORT INFORMATION
  Report Type: Spontaneous
  Country: US (occurrence: US)
  Receive Date: 20220209
  Receipt Date: 20220209
  Transmission Date: 20220423
  Serious: Yes (Death)
  Sender: FDA-Public Use
  Company Number: US-PFIZER INC-2021200433

PATIENT
  Age: 82 Year
  Sex: Female

DRUGS (1)
  1. IBRANCE [Suspect]
     Active Substance: PALBOCICLIB
     Indication: Breast cancer female
     Dosage: 100 MG
     Route: 048

REACTIONS (5)
  - Neoplasm progression [Fatal]
  - Respiratory failure [Fatal]
  - Pulmonary oedema [Fatal]
  - Pneumonia [Fatal]
  - Product dose omission issue [Unknown]
